FAERS Safety Report 5646861-X (Version None)
Quarter: 2008Q1

REPORT INFORMATION
  Report Type: 
  Country: None (occurrence: None)
  Receive Date: 20080228
  Receipt Date: 20080218
  Transmission Date: 20080703
  Serious: Yes (Life-Threatening, Other)
  Sender: FDA-Public Use
  Company Number: 2007-03617

PATIENT
  Age: 62 Year
  Sex: Male
  Weight: 60 kg

DRUGS (7)
  1. VELCADE [Suspect]
     Indication: MULTIPLE MYELOMA
     Dosage: INTRAVENOUS
     Route: 042
     Dates: start: 20071023, end: 20071026
  2. DEXAMETHASONE TAB [Concomitant]
  3. WARFARIN SODIUM [Concomitant]
  4. AMOBAN (ZOPICLONE) [Concomitant]
  5. FAMOTIDINE [Concomitant]
  6. MAG-LAX (MAGNESIUM HYDROXIDE, PARAFFIN, LIQUID) [Concomitant]
  7. FAMOTIDINE [Concomitant]

REACTIONS (5)
  - COLLAPSE OF LUNG [None]
  - LUNG DISORDER [None]
  - OXYGEN SATURATION DECREASED [None]
  - PLATELET COUNT DECREASED [None]
  - PLEURAL EFFUSION [None]
